FAERS Safety Report 7483644-2 (Version None)
Quarter: 2011Q2

REPORT INFORMATION
  Report Type: 
  Country: None (occurrence: None)
  Receive Date: 20110517
  Receipt Date: 20110509
  Transmission Date: 20111010
  Serious: Yes (Other)
  Sender: FDA-Public Use
  Company Number: CN-ASTRAZENECA-2011SE27027

PATIENT
  Age: 24 Year
  Sex: Female

DRUGS (3)
  1. ROPIVACAINE HYDROCHLORIDE [Suspect]
     Route: 008
  2. ROPIVACAINE HYDROCHLORIDE [Suspect]
     Indication: SPINAL ANAESTHESIA
     Route: 037
  3. GS [Concomitant]

REACTIONS (2)
  - POST PROCEDURAL COMPLICATION [None]
  - NERVOUS SYSTEM DISORDER [None]
